FAERS Safety Report 19005348 (Version 2)
Quarter: 2021Q2

REPORT INFORMATION
  Report Type: Report from Study
  Country: DK (occurrence: DK)
  Receive Date: 20210312
  Receipt Date: 20210402
  Transmission Date: 20210717
  Serious: Yes (Death, Hospitalization)
  Sender: FDA-Public Use
  Company Number: DK-ROCHE-2785678

PATIENT
  Age: 67 Year
  Sex: Male

DRUGS (11)
  1. OLODATEROL;TIOTROPIUM [Concomitant]
     Active Substance: OLODATEROL\TIOTROPIUM
     Dates: start: 20190523
  2. VARENICLIN [Concomitant]
     Dates: start: 20180505
  3. TIOTROPIUM BROMIDE [Concomitant]
     Active Substance: TIOTROPIUM BROMIDE
  4. SALBUTAMOL [Concomitant]
     Active Substance: ALBUTEROL
     Dates: start: 20140109
  5. CYCLOPHOSPHAMIDE. [Suspect]
     Active Substance: CYCLOPHOSPHAMIDE
     Indication: CHRONIC LYMPHOCYTIC LEUKAEMIA
     Dosage: DATE OF LAST DOSE: 18/APR/2018?CYCLES 1?6: 250 MG/M2, D1?3, Q28D
     Route: 042
     Dates: start: 20171108
  6. CALCIUM [Concomitant]
     Active Substance: CALCIUM
     Dates: start: 20171111
  7. PARACETAMOL [Concomitant]
     Active Substance: ACETAMINOPHEN
  8. FLUDARABINE PHOSPHATE. [Suspect]
     Active Substance: FLUDARABINE PHOSPHATE
     Indication: CHRONIC LYMPHOCYTIC LEUKAEMIA
     Dosage: DATE OF LAST DOSE: 18/APR/2018?CYCLES 1?6: 25 MG/M2, D1?3, Q28D
     Route: 042
     Dates: start: 20171108
  9. VITAMIN D3 [Concomitant]
     Active Substance: CHOLECALCIFEROL
     Dates: start: 20200129
  10. RITUXIMAB. [Suspect]
     Active Substance: RITUXIMAB
     Indication: CHRONIC LYMPHOCYTIC LEUKAEMIA
     Dosage: ON 16/APR/2018, LAST DOSE WAS RECEIVED?CYCLE 1: 375 MG/M2, D0; CYCLES 2?6: 500 MG/M2, D1; Q28D
     Route: 042
     Dates: start: 20171108
  11. IMMUNGLOBULIN [Concomitant]
     Active Substance: HUMAN IMMUNOGLOBULIN G
     Dosage: TOTAL DOSE: 20 G MONTLY
     Dates: start: 20200206

REACTIONS (1)
  - Richter^s syndrome [Fatal]

NARRATIVE: CASE EVENT DATE: 20201203
